FAERS Safety Report 5457787-9 (Version None)
Quarter: 2007Q3

REPORT INFORMATION
  Report Type: 
  Country: None (occurrence: None)
  Receive Date: 20070918
  Receipt Date: 20070906
  Transmission Date: 20080115
  Serious: Yes (Other)
  Sender: FDA-Public Use
  Company Number: GB-PFIZER INC-2007075345

PATIENT
  Age: 40 Year
  Sex: Female

DRUGS (2)
  1. ZYVOX [Suspect]
     Route: 065
  2. DRUG, UNSPECIFIED [Concomitant]

REACTIONS (3)
  - CARDIAC FAILURE CONGESTIVE [None]
  - HYPERKALAEMIA [None]
  - PULMONARY HYPERTENSION [None]
